FAERS Safety Report 6132736-9 (Version None)
Quarter: 2009Q1

REPORT INFORMATION
  Report Type: 
  Country: None (occurrence: None)
  Receive Date: 20090324
  Receipt Date: 20090324
  Transmission Date: 20090719
  Serious: Yes (Hospitalization)
  Sender: FDA-Public Use
  Company Number: None

PATIENT
  Sex: Male
  Weight: 58.5 kg

DRUGS (2)
  1. CYTARABINE [Suspect]
     Dosage: 37920 MG
  2. LESTAURTINIB [Suspect]
     Dosage: 495 MG

REACTIONS (4)
  - NEUTROPENIA [None]
  - PAIN IN EXTREMITY [None]
  - PYREXIA [None]
  - SUICIDAL IDEATION [None]
